FAERS Safety Report 10868865 (Version 2)
Quarter: 2015Q2

REPORT INFORMATION
  Report Type: Spontaneous
  Country: US (occurrence: US)
  Receive Date: 20150225
  Receipt Date: 20150514
  Transmission Date: 20150821
  Serious: Yes (Death, Other)
  Sender: FDA-Public Use
  Company Number: US-ASTRAZENECA-2015SE17216

PATIENT
  Sex: Male

DRUGS (8)
  1. GLIMEPIRIDE. [Concomitant]
     Active Substance: GLIMEPIRIDE
  2. BYETTA [Suspect]
     Active Substance: EXENATIDE
     Route: 065
     Dates: start: 200508, end: 200705
  3. JANUVIA [Suspect]
     Active Substance: SITAGLIPTIN PHOSPHATE
     Route: 065
     Dates: start: 20090113
  4. TAMSULOSIN [Concomitant]
     Active Substance: TAMSULOSIN
  5. NOVOLIN [Concomitant]
     Active Substance: INSULIN HUMAN
  6. WARFARIN [Concomitant]
     Active Substance: WARFARIN
  7. LOSARTAN [Concomitant]
     Active Substance: LOSARTAN
  8. JANUVIA [Suspect]
     Active Substance: SITAGLIPTIN PHOSPHATE
     Route: 065
     Dates: start: 200705, end: 201111

REACTIONS (1)
  - Pancreatic carcinoma metastatic [Fatal]
